FAERS Safety Report 9263032 (Version 1)
Quarter: 2013Q1

REPORT INFORMATION
  Report Type: Spontaneous
  Country: US (occurrence: None)
  Receive Date: 20121212
  Receipt Date: 20121212
  Transmission Date: 20140127
  Serious: No
  Sender: FDA-Public Use
  Company Number: 1209USA000778

PATIENT
  Age: 58 Year
  Sex: Male
  Weight: 81.6 kg

DRUGS (8)
  1. VICTRELIS [Suspect]
     Indication: HEPATITIS C
     Dates: start: 20120814
  2. PEGASYS [Suspect]
  3. RIBAPAK [Suspect]
  4. ADVIL (IBUPROFEN) [Concomitant]
  5. AMARYL (GLIMEPRIDE) [Concomitant]
  6. TUMS (CALCIUM CARBONATE) [Concomitant]
  7. VALACYCLOVIR HYDROCHLORIDE (VALACYCLOVIR HYDROCHLORIDE) [Concomitant]
  8. METFORMIN (METFORMIN) [Concomitant]

REACTIONS (14)
  - Pain [None]
  - Dyspepsia [None]
  - Headache [None]
  - Dysgeusia [None]
  - Fatigue [None]
  - Dry mouth [None]
  - Stomatitis [None]
  - Nausea [None]
  - Visual impairment [None]
  - Aphthous stomatitis [None]
  - Decreased appetite [None]
  - Weight decreased [None]
  - Ear pain [None]
  - Oropharyngeal pain [None]
